FAERS Safety Report 8014411-9 (Version None)
Quarter: 2011Q4

REPORT INFORMATION
  Report Type: 
  Country: None (occurrence: None)
  Receive Date: 20111229
  Receipt Date: 20111220
  Transmission Date: 20120403
  Serious: Yes (Other)
  Sender: FDA-Public Use
  Company Number: US-ELI_LILLY_AND_COMPANY-US201112006754

PATIENT
  Age: 60 Year
  Sex: Male

DRUGS (3)
  1. CYMBALTA [Suspect]
     Indication: ANXIETY
     Dosage: 30 MG, BID
  2. FLUOXETINE [Concomitant]
     Indication: ANXIETY
  3. CYMBALTA [Suspect]
     Dosage: 30 MG, BID
     Dates: start: 20111217

REACTIONS (4)
  - VISION BLURRED [None]
  - DRUG INEFFECTIVE [None]
  - BLINDNESS UNILATERAL [None]
  - DRY MOUTH [None]
